FAERS Safety Report 6036293-7 (Version None)
Quarter: 2009Q1

REPORT INFORMATION
  Report Type: 
  Country: None (occurrence: None)
  Receive Date: 20090109
  Receipt Date: 20080815
  Transmission Date: 20090719
  Serious: Yes (Hospitalization)
  Sender: FDA-Public Use
  Company Number: 2008EN000117

PATIENT
  Age: 53 Year
  Sex: Male
  Weight: 70 kg

DRUGS (2)
  1. ABELCET [Suspect]
     Indication: MENINGITIS CRYPTOCOCCAL
     Dosage: 350 MG; QD; IV
     Route: 042
     Dates: start: 20080801, end: 20080815
  2. ONCOVIN [Concomitant]

REACTIONS (1)
  - THROMBOCYTOPENIA [None]
